FAERS Safety Report 5534206-5 (Version None)
Quarter: 2007Q4

REPORT INFORMATION
  Report Type: 
  Country: None (occurrence: None)
  Receive Date: 20071130
  Receipt Date: 20071115
  Transmission Date: 20080405
  Serious: Yes (Hospitalization)
  Sender: FDA-Public Use
  Company Number: 8028236

PATIENT
  Age: 79 Year
  Sex: Female

DRUGS (2)
  1. KEPPRA [Suspect]
     Indication: EPILEPSY
     Dosage: 1000 MG
     Dates: start: 20070101, end: 20071101
  2. FENISTIL [Concomitant]

REACTIONS (1)
  - PRURITUS [None]
